FAERS Safety Report 8220074-X (Version None)
Quarter: 2012Q1

REPORT INFORMATION
  Report Type: 
  Country: None (occurrence: None)
  Receive Date: 20120320
  Receipt Date: 20120313
  Transmission Date: 20120608
  Serious: Yes (Hospitalization)
  Sender: FDA-Public Use
  Company Number: US-BIOGENIDEC-2012BI006807

PATIENT
  Age: 61 Year
  Sex: Female

DRUGS (13)
  1. TYSABRI [Suspect]
     Indication: MULTIPLE SCLEROSIS
     Route: 042
     Dates: start: 20090910, end: 20111220
  2. NEURONTIN [Concomitant]
     Route: 048
  3. BACLOFEN [Concomitant]
     Route: 048
  4. AMITIZA [Concomitant]
     Dosage: DOSE UNIT:24
     Route: 048
  5. ACIDOPHILUS [Concomitant]
  6. WELLBUTRIN [Concomitant]
     Route: 048
  7. KLONOPIN [Concomitant]
     Route: 048
  8. PRIMIDONE [Concomitant]
     Route: 048
  9. FOSAMAX [Concomitant]
  10. LIPITOR [Concomitant]
     Route: 048
  11. SELENIUM [Concomitant]
     Route: 048
  12. MACRODANTIN [Concomitant]
     Route: 048
  13. CATAPRES [Concomitant]

REACTIONS (2)
  - PNEUMONITIS [None]
  - PNEUMONIA ASPIRATION [None]
